FAERS Safety Report 9854049 (Version 1)
Quarter: 2014Q1

REPORT INFORMATION
  Report Type: Spontaneous
  Country: IN (occurrence: IN)
  Receive Date: 20140129
  Receipt Date: 20140129
  Transmission Date: 20141002
  Serious: Yes (Hospitalization, Other)
  Sender: FDA-Public Use
  Company Number: IN-PFIZER INC-2014024101

PATIENT
  Age: 26 Year
  Sex: Male

DRUGS (2)
  1. PHENYTOIN [Suspect]
     Indication: COMPLEX PARTIAL SEIZURES
     Dosage: 300 MG, DAILY
  2. PHENOBARBITONE [Suspect]
     Indication: COMPLEX PARTIAL SEIZURES
     Dosage: 60 MG, DAILY

REACTIONS (15)
  - Intentional overdose [Recovered/Resolved]
  - Suicide attempt [Recovered/Resolved]
  - Loss of consciousness [Recovered/Resolved]
  - Coma [Recovered/Resolved]
  - Depressed mood [Not Recovered/Not Resolved]
  - Abnormal behaviour [Not Recovered/Not Resolved]
  - Impulsive behaviour [Not Recovered/Not Resolved]
  - Cognitive disorder [Not Recovered/Not Resolved]
  - Stubbornness [Not Recovered/Not Resolved]
  - Anxiety [Not Recovered/Not Resolved]
  - Irritability [Not Recovered/Not Resolved]
  - Frustration [Not Recovered/Not Resolved]
  - Insomnia [Not Recovered/Not Resolved]
  - Phobia [Not Recovered/Not Resolved]
  - Pain [Unknown]
